FAERS Safety Report 17380787 (Version 1)
Quarter: 2020Q1

REPORT INFORMATION
  Report Type: Spontaneous
  Country: US (occurrence: US)
  Receive Date: 20200206
  Receipt Date: 20200206
  Transmission Date: 20200409
  Serious: No
  Sender: FDA-Public Use
  Company Number: US-ABBVIE-19K-163-2756256-00

PATIENT
  Age: 54 Year
  Sex: Male

DRUGS (2)
  1. HUMIRA [Suspect]
     Active Substance: ADALIMUMAB
     Indication: PSORIATIC ARTHROPATHY
     Route: 058
  2. HUMIRA [Suspect]
     Active Substance: ADALIMUMAB
     Indication: ANKYLOSING SPONDYLITIS

REACTIONS (13)
  - Erythema [Not Recovered/Not Resolved]
  - Psoriatic arthropathy [Unknown]
  - Peripheral swelling [Not Recovered/Not Resolved]
  - Device issue [Recovered/Resolved]
  - Incorrect dose administered [Recovered/Resolved]
  - Feeling abnormal [Unknown]
  - Anxiety [Unknown]
  - Fatigue [Unknown]
  - Exposure via ingestion [Recovered/Resolved]
  - Skin plaque [Unknown]
  - Foot deformity [Not Recovered/Not Resolved]
  - Pain [Unknown]
  - Back pain [Not Recovered/Not Resolved]

NARRATIVE: CASE EVENT DATE: 201904
